FAERS Safety Report 13662531 (Version 2)
Quarter: 2017Q3

REPORT INFORMATION
  Report Type: Spontaneous
  Country: GB (occurrence: GB)
  Receive Date: 20170617
  Receipt Date: 20170708
  Transmission Date: 20171127
  Serious: Yes (Hospitalization)
  Sender: FDA-Public Use
  Company Number: GB-009507513-1706GBR005326

PATIENT
  Age: 87 Year
  Sex: Male

DRUGS (15)
  1. LANZOPRAZOL [Concomitant]
     Active Substance: LANSOPRAZOLE
     Dosage: 30 G, QD
     Route: 048
  2. PREDNISOLONE. [Concomitant]
     Active Substance: PREDNISOLONE
     Dosage: 30-60 MG, QD
     Route: 048
  3. DIHYDROCODEINE [Concomitant]
     Active Substance: DIHYDROCODEINE
     Indication: ANALGESIC THERAPY
     Dosage: 30 MG, QD AND WHEN NECESSARY
     Route: 048
  4. AMLODIPINE [Concomitant]
     Active Substance: AMLODIPINE BESYLATE
     Indication: BLOOD PRESSURE MANAGEMENT
     Dosage: 5 MG, DAILY
     Route: 048
  5. AMLODIPINE [Concomitant]
     Active Substance: AMLODIPINE BESYLATE
     Dosage: UNK
  6. CUBICIN [Suspect]
     Active Substance: DAPTOMYCIN
     Dosage: 700 MG, QD
     Route: 042
     Dates: start: 20170324, end: 20170508
  7. LINEZOLID. [Concomitant]
     Active Substance: LINEZOLID
     Dosage: 600 MG, QD
     Route: 048
     Dates: start: 2017
  8. ACETAMINOPHEN. [Concomitant]
     Active Substance: ACETAMINOPHEN
     Indication: PAIN
     Dosage: 1 G, QD
     Route: 048
  9. DALTEPARIN SODIUM [Concomitant]
     Active Substance: DALTEPARIN SODIUM
     Indication: THROMBOSIS PROPHYLAXIS
     Dosage: 500 UNITS DAILY
     Route: 058
  10. SENNA [Concomitant]
     Active Substance: SENNA LEAF\SENNOSIDES\SENNOSIDES A AND B
     Indication: LAXATIVE SUPPORTIVE CARE
     Dosage: 15 MG, HS
     Route: 048
  11. CUBICIN [Suspect]
     Active Substance: DAPTOMYCIN
     Dosage: 750 MG, DAILY
     Route: 042
     Dates: start: 20170311, end: 20170422
  12. LINEZOLID. [Concomitant]
     Active Substance: LINEZOLID
     Indication: LOCALISED INFECTION
     Dosage: 600 MG, QD
     Route: 048
     Dates: start: 20170422, end: 20170519
  13. CUBICIN [Suspect]
     Active Substance: DAPTOMYCIN
     Indication: LOCALISED INFECTION
     Dosage: 500 MG, DAILY
     Route: 042
     Dates: start: 20170227, end: 20170311
  14. SODIUM CHLORIDE. [Suspect]
     Active Substance: SODIUM CHLORIDE
     Indication: LOCALISED INFECTION
     Dosage: 100 ML S.SALINE AS DILUENT
     Route: 042
     Dates: start: 20170227, end: 20170311
  15. ACETAMINOPHEN. [Concomitant]
     Active Substance: ACETAMINOPHEN
     Dosage: UNK

REACTIONS (2)
  - Eosinophilic pneumonia [Recovering/Resolving]
  - Drug eruption [Recovering/Resolving]

NARRATIVE: CASE EVENT DATE: 20170425
